FAERS Safety Report 5406070-6 (Version None)
Quarter: 2007Q3

REPORT INFORMATION
  Report Type: 
  Country: None (occurrence: None)
  Receive Date: 20070806
  Receipt Date: 20070802
  Transmission Date: 20080115
  Serious: Yes (Death, Hospitalization)
  Sender: FDA-Public Use
  Company Number: B0482047A

PATIENT
  Age: 60 Year
  Sex: Male

DRUGS (2)
  1. AUGMENTIN '125' [Suspect]
     Indication: UPPER RESPIRATORY TRACT INFECTION
     Dosage: 875MG THREE TIMES PER DAY
     Route: 048
  2. ORAP [Concomitant]

REACTIONS (7)
  - ANAPHYLACTIC SHOCK [None]
  - BRAIN DEATH [None]
  - CARDIAC ARREST [None]
  - CYANOSIS [None]
  - HYPERSENSITIVITY [None]
  - LIP SWELLING [None]
  - RASH [None]
